FAERS Safety Report 5042167-0 (Version None)
Quarter: 2006Q2

REPORT INFORMATION
  Report Type: 
  Country: None (occurrence: None)
  Receive Date: 20060627
  Receipt Date: 20060616
  Transmission Date: 20061013
  Serious: No
  Sender: FDA-Public Use
  Company Number: 06H-163-0308406-00

PATIENT
  Age: 67 Year
  Sex: Female

DRUGS (2)
  1. EPINEPHRINE [Suspect]
     Indication: DRUG USE FOR UNKNOWN INDICATION
     Dosage: OCULAR USE
     Dates: start: 20060515, end: 20060515
  2. BSS [Suspect]
     Indication: EYE IRRIGATION
     Dosage: OCULAR USE
     Dates: start: 20060515, end: 20060515

REACTIONS (5)
  - CATARACT OPERATION COMPLICATION [None]
  - ENDOPHTHALMITIS [None]
  - EYE INFECTION [None]
  - STAPHYLOCOCCAL INFECTION [None]
  - VISUAL ACUITY REDUCED [None]
